FAERS Safety Report 18932190 (Version 2)
Quarter: 2021Q1

REPORT INFORMATION
  Report Type: Spontaneous
  Country: DE (occurrence: DE)
  Receive Date: 20210223
  Receipt Date: 20210317
  Transmission Date: 20210420
  Serious: Yes (Life-Threatening, Other)
  Sender: FDA-Public Use
  Company Number: DE-GILEAD-2021-0516167

PATIENT
  Age: 50 Year
  Sex: Male
  Weight: 98 kg

DRUGS (6)
  1. RAMIPRIL. [Concomitant]
     Active Substance: RAMIPRIL
     Indication: RESPIRATORY RATE
  2. BIKTARVY [Suspect]
     Active Substance: BICTEGRAVIR SODIUM\EMTRICITABINE\TENOFOVIR ALAFENAMIDE FUMARATE
     Indication: HIV INFECTION
     Dosage: 1 DOSAGE FORM
     Route: 048
  3. ATORVASTATIN [Concomitant]
     Active Substance: ATORVASTATIN
     Indication: BLOOD CHOLESTEROL
  4. BISOPROLOL [Concomitant]
     Active Substance: BISOPROLOL
     Indication: RESPIRATORY RATE
  5. MARCUMAR [Suspect]
     Active Substance: PHENPROCOUMON
     Dosage: ONE TABLET EVERY DAY
     Route: 065
  6. MARCUMAR [Suspect]
     Active Substance: PHENPROCOUMON
     Indication: CARDIAC VALVE PROSTHESIS USER
     Dosage: SCHEMA
     Route: 065

REACTIONS (2)
  - Internal haemorrhage [Unknown]
  - International normalised ratio abnormal [Recovered/Resolved]

NARRATIVE: CASE EVENT DATE: 202012
